FAERS Safety Report 20083528 (Version 1)
Quarter: 2021Q4

REPORT INFORMATION
  Report Type: Spontaneous
  Country: IT (occurrence: IT)
  Receive Date: 20211118
  Receipt Date: 20211118
  Transmission Date: 20220303
  Serious: Yes (Other)
  Sender: FDA-Public Use
  Company Number: IT-ABBVIE-21K-083-4165255-00

PATIENT
  Age: 36 Year
  Sex: Male
  Weight: 90 kg

DRUGS (4)
  1. VALPROATE SODIUM [Suspect]
     Active Substance: VALPROATE SODIUM
     Indication: Bipolar I disorder
     Route: 048
     Dates: start: 20180330
  2. QUETIAPINE FUMARATE [Suspect]
     Active Substance: QUETIAPINE FUMARATE
     Indication: Bipolar I disorder
     Route: 048
     Dates: start: 20180330
  3. TALOFEN [Suspect]
     Active Substance: PROMAZINE HYDROCHLORIDE
     Indication: Bipolar I disorder
     Dosage: 4/100 G/ML, DAILY DOSE: 30 GTT DROPS
     Route: 048
     Dates: start: 20180330
  4. LITHIUM SULFATE [Suspect]
     Active Substance: LITHIUM SULFATE
     Indication: Bipolar I disorder
     Route: 048
     Dates: start: 20180330

REACTIONS (3)
  - Electrocardiogram QT prolonged [Not Recovered/Not Resolved]
  - Resting tremor [Not Recovered/Not Resolved]
  - Weight increased [Not Recovered/Not Resolved]

NARRATIVE: CASE EVENT DATE: 20190520
